FAERS Safety Report 20336244 (Version 1)
Quarter: 2022Q1

REPORT INFORMATION
  Report Type: Spontaneous
  Country: FR (occurrence: FR)
  Receive Date: 20220114
  Receipt Date: 20220114
  Transmission Date: 20220423
  Serious: Yes (Other)
  Sender: FDA-Public Use
  Company Number: FR-BAYER-2021A254750

PATIENT
  Age: 68 Year
  Sex: Male

DRUGS (2)
  1. STIVARGA [Suspect]
     Active Substance: REGORAFENIB
     Indication: Angiosarcoma
     Dosage: UNK
     Dates: start: 20210710
  2. STIVARGA [Suspect]
     Active Substance: REGORAFENIB
     Indication: Hepatocellular carcinoma

REACTIONS (2)
  - Dysphagia [None]
  - Gastrostomy [None]

NARRATIVE: CASE EVENT DATE: 20210101
